FAERS Safety Report 5640893-3 (Version None)
Quarter: 2008Q1

REPORT INFORMATION
  Report Type: 
  Country: None (occurrence: None)
  Receive Date: 20080227
  Receipt Date: 20080222
  Transmission Date: 20080703
  Serious: Yes (Other)
  Sender: FDA-Public Use
  Company Number: B0507627A

PATIENT
  Age: 46 Year
  Sex: Female

DRUGS (3)
  1. RELENZA [Suspect]
     Indication: INFLUENZA
     Dosage: 10MG TWICE PER DAY
     Route: 055
     Dates: start: 20080205
  2. ALLELOCK [Concomitant]
     Dosage: 10MG PER DAY
     Route: 048
  3. BIO THREE [Concomitant]
     Dosage: 3G PER DAY
     Route: 048

REACTIONS (6)
  - BLOOD PRESSURE DECREASED [None]
  - BRADYCARDIA [None]
  - DIZZINESS [None]
  - FALL [None]
  - HYPERSENSITIVITY [None]
  - VISUAL DISTURBANCE [None]
